FAERS Safety Report 4643935-7 (Version None)
Quarter: 2005Q2

REPORT INFORMATION
  Report Type: 
  Country: None (occurrence: None)
  Receive Date: 20050331
  Receipt Date: 20050216
  Transmission Date: 20051028
  Serious: No
  Sender: FDA-Public Use
  Company Number: 05P-163-0290912-00

PATIENT
  Age: 61 Year
  Sex: Female
  Weight: 53.5244 kg

DRUGS (2)
  1. HUMIRA [Suspect]
     Indication: RHEUMATOID ARTHRITIS
     Dosage: 40 MG, 1 IN 2 WK, SUBCUTANEOUS
     Route: 058
     Dates: start: 20050215
  2. PREDNISONE [Concomitant]

REACTIONS (1)
  - INJECTION SITE IRRITATION [None]
